FAERS Safety Report 14311606 (Version 1)
Quarter: 2017Q4

REPORT INFORMATION
  Report Type: Spontaneous
  Country: DE (occurrence: DE)
  Receive Date: 20171221
  Receipt Date: 20171221
  Transmission Date: 20180321
  Serious: Yes (Life-Threatening, Hospitalization, Other)
  Sender: FDA-Public Use
  Company Number: DE-CIPLA LTD.-2017DE23741

PATIENT

DRUGS (11)
  1. MUCOFALK [Concomitant]
     Indication: CONSTIPATION
     Dosage: 1 UNK, BID
     Route: 048
  2. FOLINIC ACID [Suspect]
     Active Substance: LEUCOVORIN
     Indication: COLORECTAL CANCER METASTATIC
     Dosage: 720 MG, UNK
     Route: 065
     Dates: start: 20171027
  3. IRINOTECAN [Suspect]
     Active Substance: IRINOTECAN
     Indication: COLORECTAL CANCER METASTATIC
     Dosage: 324 MG, UNK
     Route: 065
     Dates: start: 20171027
  4. PANITUMUMAB [Suspect]
     Active Substance: PANITUMUMAB
     Indication: COLORECTAL CANCER METASTATIC
     Dosage: 400 MG, UNK
     Route: 042
     Dates: start: 20171027
  5. EUTHYROX [Concomitant]
     Active Substance: LEVOTHYROXINE SODIUM
     Indication: HYPOTHYROIDISM
     Dosage: 50 MUG, QD
     Route: 048
  6. PANTOZOL CONTROL [Concomitant]
     Dosage: 40 MG, QD
     Route: 048
     Dates: start: 20171026
  7. FLUOROURACIL. [Suspect]
     Active Substance: FLUOROURACIL
     Dosage: 4320 MG, UNK
     Route: 042
     Dates: start: 20171027
  8. PREDNISOLON JENAPHARM [Concomitant]
     Dosage: 10 MG, QD
     Route: 048
     Dates: start: 1986
  9. RAMIPRIL BETA COMP [Concomitant]
     Indication: HYPERTONIA
     Dosage: 5 MG, QD
     Route: 048
  10. FLUOROURACIL. [Suspect]
     Active Substance: FLUOROURACIL
     Indication: COLORECTAL CANCER METASTATIC
     Dosage: 720 MG, UNK
     Route: 040
     Dates: start: 20171027
  11. BELOC ZOK [Concomitant]
     Active Substance: METOPROLOL SUCCINATE
     Indication: HYPERTONIA
     Dosage: 47.5 MG, QD
     Route: 048

REACTIONS (2)
  - Dermatitis acneiform [Not Recovered/Not Resolved]
  - Drug ineffective [Unknown]

NARRATIVE: CASE EVENT DATE: 20171129
